FAERS Safety Report 6101350-3 (Version None)
Quarter: 2009Q1

REPORT INFORMATION
  Report Type: 
  Country: None (occurrence: None)
  Receive Date: 20090303
  Receipt Date: 20090303
  Transmission Date: 20090719
  Serious: Yes (Other)
  Sender: FDA-Public Use
  Company Number: None

PATIENT
  Age: 65 Year
  Sex: Female
  Weight: 81.6475 kg

DRUGS (1)
  1. LEVOTHYROXINE SODIUM [Suspect]
     Indication: HYPOTHYROIDISM
     Dosage: 1 TABLET DAILY PO
     Route: 048
     Dates: start: 20090210, end: 20090223

REACTIONS (6)
  - ARTHRALGIA [None]
  - DISTURBANCE IN ATTENTION [None]
  - FEAR OF FALLING [None]
  - MENTAL DISORDER [None]
  - PRODUCT QUALITY ISSUE [None]
  - TOOTHACHE [None]
